FAERS Safety Report 11669662 (Version 1)
Quarter: 2015Q4

REPORT INFORMATION
  Report Type: Spontaneous
  Country: US (occurrence: US)
  Receive Date: 20151027
  Receipt Date: 20151027
  Transmission Date: 20160304
  Serious: No
  Sender: FDA-Public Use
  Company Number: US-ELI_LILLY_AND_COMPANY-US201002005079

PATIENT
  Sex: Female

DRUGS (4)
  1. NASONEX [Concomitant]
     Active Substance: MOMETASONE FUROATE
     Indication: HYPERSENSITIVITY
     Dosage: UNK, UNKNOWN
  2. FORTEO [Suspect]
     Active Substance: TERIPARATIDE
     Indication: OSTEOPOROSIS
     Dosage: 20 UG, DAILY (1/D)
     Dates: start: 20090323
  3. VICODIN [Concomitant]
     Active Substance: ACETAMINOPHEN\HYDROCODONE BITARTRATE
     Indication: BONE PAIN
     Dosage: UNK, UNKNOWN
  4. ATIVAN [Concomitant]
     Active Substance: LORAZEPAM
     Indication: ANXIETY
     Dosage: UNK, UNKNOWN

REACTIONS (7)
  - Bone pain [Unknown]
  - Paraesthesia [Unknown]
  - Rib fracture [Unknown]
  - Hypoaesthesia [Unknown]
  - Foot fracture [Not Recovered/Not Resolved]
  - Pain in extremity [Unknown]
  - Morton^s neuralgia [Recovering/Resolving]

NARRATIVE: CASE EVENT DATE: 2009
